FAERS Safety Report 10915904 (Version 1)
Quarter: 2015Q1

REPORT INFORMATION
  Report Type: Spontaneous
  Country: US (occurrence: None)
  Receive Date: 20150311
  Receipt Date: 20150311
  Transmission Date: 20150721
  Serious: No
  Sender: FDA-Public Use
  Company Number: None

PATIENT
  Age: 56 Year
  Sex: Female
  Weight: 171 kg

DRUGS (13)
  1. BUPROPION [Suspect]
     Active Substance: BUPROPION
     Indication: DEPRESSION
     Dosage: 3 TABLETS
     Route: 048
  2. MAGNESIUM SULFATE. [Concomitant]
     Active Substance: MAGNESIUM SULFATE
  3. LEVOTHYROXINE [Concomitant]
     Active Substance: LEVOTHYROXINE
  4. FUROSEMIDE. [Concomitant]
     Active Substance: FUROSEMIDE
  5. ASPIRIN. [Concomitant]
     Active Substance: ASPIRIN
  6. IOPAMIDOL [Concomitant]
     Active Substance: IOPAMIDOL
  7. INSULIN [Concomitant]
     Active Substance: INSULIN NOS
  8. CHRONIC THERAPIES [Concomitant]
  9. TIZANIDINE (TIZANIDINE) [Concomitant]
     Active Substance: TIZANIDINE
  10. FLUTICASONE [Concomitant]
     Active Substance: FLUTICASONE\FLUTICASONE PROPIONATE
  11. REGADENOSON [Concomitant]
     Active Substance: REGADENOSON
  12. METFORMIN [Concomitant]
     Active Substance: METFORMIN HYDROCHLORIDE
  13. FLUTICASONE-SALMETEROL [Concomitant]

REACTIONS (9)
  - Pain in extremity [None]
  - Gait disturbance [None]
  - Ventricular extrasystoles [None]
  - Muscle tightness [None]
  - Chest pain [None]
  - Sinus tachycardia [None]
  - Blood creatine phosphokinase increased [None]
  - Palpitations [None]
  - Patellofemoral pain syndrome [None]

NARRATIVE: CASE EVENT DATE: 20150116
